FAERS Safety Report 5210628-7 (Version None)
Quarter: 2006Q4

REPORT INFORMATION
  Report Type: 
  Country: None (occurrence: None)
  Receive Date: 20061106
  Receipt Date: 20060926
  Transmission Date: 20070319
  Serious: No
  Sender: FDA-Public Use
  Company Number: VNL_0218_2006

PATIENT
  Sex: Male

DRUGS (1)
  1. APOKYN [Suspect]
     Dosage: DF SC
     Route: 058

REACTIONS (2)
  - INJECTION SITE BRUISING [None]
  - SOMNOLENCE [None]
